FAERS Safety Report 9247587 (Version 1)
Quarter: 2013Q2

REPORT INFORMATION
  Report Type: Spontaneous
  Country: AU (occurrence: AU)
  Receive Date: 20130423
  Receipt Date: 20130423
  Transmission Date: 20140414
  Serious: Yes (Death)
  Sender: FDA-Public Use
  Company Number: PHHY2013AU037976

PATIENT
  Sex: 0

DRUGS (1)
  1. DEFERASIROX [Suspect]
     Indication: ACUTE MYELOID LEUKAEMIA
     Dosage: UNK

REACTIONS (3)
  - Clostridial infection [Fatal]
  - Rectal perforation [Fatal]
  - Necrotising fasciitis [Fatal]
